FAERS Safety Report 5187328-5 (Version None)
Quarter: 2006Q4

REPORT INFORMATION
  Report Type: 
  Country: None (occurrence: None)
  Receive Date: 20061214
  Receipt Date: 20061202
  Transmission Date: 20070319
  Serious: Yes (Other)
  Sender: FDA-Public Use
  Company Number: 2006148282

PATIENT
  Age: 67 Year
  Sex: Female

DRUGS (5)
  1. CELEBREX [Suspect]
     Indication: OSTEOARTHRITIS
     Dosage: 200 MG (200 MG, 1 IN 1 D), ORAL
     Route: 048
  2. AMARYL [Concomitant]
  3. GLUCOPHAGE [Concomitant]
  4. RAMIPRIL [Concomitant]
  5. NICARDIPINE HYDROCHLORIDE [Concomitant]

REACTIONS (1)
  - DEATH [None]
